FAERS Safety Report 15492567 (Version 1)
Quarter: 2018Q4

REPORT INFORMATION
  Report Type: Spontaneous
  Country: US (occurrence: US)
  Receive Date: 20181012
  Receipt Date: 20181012
  Transmission Date: 20190205
  Serious: Yes (Hospitalization, Other)
  Sender: FDA-Public Use
  Company Number: US-JNJFOC-20181011958

PATIENT
  Age: 54 Year
  Sex: Male

DRUGS (2)
  1. INVOKANA [Suspect]
     Active Substance: CANAGLIFLOZIN
     Indication: TYPE 2 DIABETES MELLITUS
     Dosage: 100 MG/300 MG DAILY
     Route: 048
     Dates: start: 20131227
  2. INVOKANA [Suspect]
     Active Substance: CANAGLIFLOZIN
     Indication: TYPE 2 DIABETES MELLITUS
     Route: 048

REACTIONS (11)
  - Bone operation [Unknown]
  - Diabetes mellitus inadequate control [Unknown]
  - Sepsis [Recovered/Resolved]
  - Rash [Unknown]
  - Toe amputation [Unknown]
  - Foot amputation [Unknown]
  - Pyrexia [Unknown]
  - Osteomyelitis [Unknown]
  - Cellulitis [Unknown]
  - Diabetic ulcer [Unknown]
  - Cough [Unknown]

NARRATIVE: CASE EVENT DATE: 201312
